FAERS Safety Report 7764005-5 (Version None)
Quarter: 2011Q3

REPORT INFORMATION
  Report Type: 
  Country: None (occurrence: None)
  Receive Date: 20110921
  Receipt Date: 20110919
  Transmission Date: 20111222
  Serious: No
  Sender: FDA-Public Use
  Company Number: US-PFIZER INC-2011222122

PATIENT
  Age: 78 Year
  Sex: Female
  Weight: 60.77 kg

DRUGS (2)
  1. LIPITOR [Suspect]
     Dosage: 40 MG, ONCE A DAY
     Dates: start: 20110915
  2. LIPITOR [Suspect]
     Indication: BLOOD CHOLESTEROL INCREASED
     Dosage: 20 MG, ONCE A DAY
     Route: 048
     Dates: start: 20110801, end: 20110915

REACTIONS (3)
  - DRUG INEFFECTIVE [None]
  - CONSTIPATION [None]
  - LOW DENSITY LIPOPROTEIN INCREASED [None]
